FAERS Safety Report 21589266 (Version 3)
Quarter: 2023Q1

REPORT INFORMATION
  Report Type: Report from Study
  Country: IT (occurrence: IT)
  Receive Date: 20221114
  Receipt Date: 20230328
  Transmission Date: 20230418
  Serious: Yes (Hospitalization, Other)
  Sender: FDA-Public Use
  Company Number: IT-UCBSA-2022042380

PATIENT
  Sex: Male

DRUGS (2)
  1. LACOSAMIDE [Suspect]
     Active Substance: LACOSAMIDE
     Indication: Epilepsy
     Dosage: 150 MILLIGRAM
     Route: 048
     Dates: start: 2017
  2. KEPPRA [Suspect]
     Active Substance: LEVETIRACETAM
     Indication: Product used for unknown indication
     Dosage: 1500 MILLIGRAM, 2X/DAY (BID)

REACTIONS (5)
  - Seizure [Not Recovered/Not Resolved]
  - Prostatic operation [Recovering/Resolving]
  - Epilepsy [Recovering/Resolving]
  - Prostate cancer [Recovering/Resolving]
  - Therapy interrupted [Unknown]

NARRATIVE: CASE EVENT DATE: 20200701
